FAERS Safety Report 12720540 (Version 1)
Quarter: 2016Q3

REPORT INFORMATION
  Report Type: Spontaneous
  Country: CN (occurrence: CN)
  Receive Date: 20160907
  Receipt Date: 20160907
  Transmission Date: 20161109
  Serious: Yes (Hospitalization)
  Sender: FDA-Public Use
  Company Number: CN-BAYER-2016-171071

PATIENT
  Age: 72 Year
  Sex: Male
  Weight: 53 kg

DRUGS (6)
  1. SODIUM CHLORIDE. [Concomitant]
     Active Substance: SODIUM CHLORIDE
     Indication: DRUG THERAPY ENHANCEMENT
     Dosage: 100 ML, QD
     Route: 041
     Dates: start: 20160626, end: 20160704
  2. SODIUM CHLORIDE. [Concomitant]
     Active Substance: SODIUM CHLORIDE
     Indication: DRUG THERAPY ENHANCEMENT
     Dosage: 100 ML, QD
     Route: 041
     Dates: start: 20160626, end: 20160704
  3. CEFTIZOXIME [Concomitant]
     Active Substance: CEFTIZOXIME
     Indication: LUNG INFECTION
     Dosage: 2 G, QD
     Route: 041
     Dates: start: 20160626, end: 20160704
  4. BAYASPIRIN [Suspect]
     Active Substance: ASPIRIN
     Indication: PLATELET AGGREGATION INHIBITION
     Dosage: 0.1 G, QD
     Route: 048
     Dates: start: 20160621, end: 20160705
  5. SODIUM CHLORIDE. [Concomitant]
     Active Substance: SODIUM CHLORIDE
     Indication: DRUG THERAPY ENHANCEMENT
     Dosage: 250 ML, QD
     Route: 041
     Dates: start: 20160627, end: 20160704
  6. AMBROXOL HYDROCHLORIDE [Concomitant]
     Active Substance: AMBROXOL HYDROCHLORIDE
     Indication: SPUTUM ABNORMAL
     Dosage: 30 MG, QD
     Route: 041
     Dates: start: 20160626, end: 20160704

REACTIONS (1)
  - Henoch-Schonlein purpura [Recovering/Resolving]

NARRATIVE: CASE EVENT DATE: 20160704
